FAERS Safety Report 5930624-1 (Version None)
Quarter: 2008Q4

REPORT INFORMATION
  Report Type: 
  Country: None (occurrence: None)
  Receive Date: 20081021
  Receipt Date: 20081009
  Transmission Date: 20090506
  Serious: Yes (Other)
  Sender: FDA-Public Use
  Company Number: 2008-03404

PATIENT
  Age: 71 Year
  Sex: Male

DRUGS (4)
  1. VELCADE [Suspect]
     Indication: PLASMACYTOMA
     Dosage: INTRAVENOUS
     Route: 042
     Dates: start: 20080408, end: 20080812
  2. DEXAMETHASONE TAB [Suspect]
     Indication: DRUG USE FOR UNKNOWN INDICATION
  3. ALLOPURINOL [Concomitant]
  4. VITAMIN B [Concomitant]

REACTIONS (4)
  - AGGRESSION [None]
  - ANGER [None]
  - MEMORY IMPAIRMENT [None]
  - PERSONALITY CHANGE [None]
